FAERS Safety Report 13304913 (Version 1)
Quarter: 2017Q1

REPORT INFORMATION
  Report Type: Spontaneous
  Country: US (occurrence: US)
  Receive Date: 20170307
  Receipt Date: 20170307
  Transmission Date: 20170428
  Serious: Yes (Other)
  Sender: FDA-Public Use
  Company Number: None

PATIENT
  Age: 30 Year
  Sex: Female
  Weight: 54 kg

DRUGS (5)
  1. MULTI-VITAMINS [Concomitant]
  2. DIGESTIVE ENZYMES [Concomitant]
     Active Substance: UNSPECIFIED INGREDIENT
  3. VITAMIN B12 [Concomitant]
     Active Substance: CYANOCOBALAMIN
  4. MEDICAL MARIJUANA [Concomitant]
     Active Substance: CANNABIS SATIVA SUBSP. INDICA TOP
  5. OLANZAPINE. [Suspect]
     Active Substance: OLANZAPINE
     Indication: DRUG THERAPY
     Route: 048
     Dates: start: 20170126, end: 20170221

REACTIONS (12)
  - Tremor [None]
  - Peripheral swelling [None]
  - Musculoskeletal stiffness [None]
  - Constipation [None]
  - Progesterone abnormal [None]
  - Dizziness [None]
  - Blood pressure decreased [None]
  - Acne [None]
  - Hypersensitivity [None]
  - Hormone level abnormal [None]
  - Appetite disorder [None]
  - Blood glucose abnormal [None]

NARRATIVE: CASE EVENT DATE: 20170221
